APPROVED DRUG PRODUCT: SUPRAX
Active Ingredient: CEFIXIME
Strength: 400MG
Dosage Form/Route: TABLET;ORAL
Application: A065130 | Product #001
Applicant: LUPIN PHARMACEUTICALS INC
Approved: Feb 12, 2004 | RLD: No | RS: No | Type: DISCN